FAERS Safety Report 11268250 (Version 1)
Quarter: 2015Q3

REPORT INFORMATION
  Report Type: Spontaneous
  Country: US (occurrence: US)
  Receive Date: 20150714
  Receipt Date: 20150714
  Transmission Date: 20151125
  Serious: Yes (Disabling)
  Sender: FDA-Public Use
  Company Number: US-MACLEODS PHARMA UK LTD-MAC2015001717

PATIENT

DRUGS (1)
  1. LEVOFLOXACIN 500 MG TABLETS [Suspect]
     Active Substance: LEVOFLOXACIN
     Indication: CHRONIC OBSTRUCTIVE PULMONARY DISEASE
     Dosage: 500 MG, UNK
     Route: 065

REACTIONS (6)
  - Tendon rupture [Unknown]
  - Rotator cuff syndrome [Unknown]
  - Pain [Unknown]
  - Tendon pain [Unknown]
  - Joint swelling [Unknown]
  - Disability [Unknown]
